FAERS Safety Report 9919188 (Version 1)
Quarter: 2014Q1

REPORT INFORMATION
  Report Type: Spontaneous
  Country: US (occurrence: US)
  Receive Date: 20140224
  Receipt Date: 20140224
  Transmission Date: 20141002
  Serious: Yes (Other)
  Sender: FDA-Public Use
  Company Number: US-PFIZER INC-2014048462

PATIENT
  Sex: Female

DRUGS (3)
  1. CHANTIX [Suspect]
     Indication: SMOKING CESSATION THERAPY
     Dosage: 0.5 MG, UNK
     Dates: start: 2006
  2. CHANTIX [Suspect]
     Dosage: 1 MG, UNK
  3. CHANTIX [Suspect]
     Dosage: 0.5 MG, UNK

REACTIONS (9)
  - Depression [Unknown]
  - Emotional disorder [Unknown]
  - Menopause [Unknown]
  - Affect lability [Unknown]
  - Hormone level abnormal [Unknown]
  - Agitation [Unknown]
  - Anger [Unknown]
  - Vomiting [Unknown]
  - Nausea [Recovered/Resolved]
